FAERS Safety Report 5752152-9 (Version None)
Quarter: 2008Q2

REPORT INFORMATION
  Report Type: 
  Country: None (occurrence: None)
  Receive Date: 20080527
  Receipt Date: 20080515
  Transmission Date: 20081010
  Serious: Yes (Hospitalization)
  Sender: FDA-Public Use
  Company Number: FPI-08-TEV-022

PATIENT
  Age: 18 Month
  Sex: Female
  Weight: 8.6183 kg

DRUGS (3)
  1. TEV TROPIN (RECONSTITUTED) 5 MG IN 2 ML OF NS [Suspect]
     Indication: HYPOPITUITARISM
     Dosage: 0.16ML PER INJECTION SQ
     Dates: start: 20080508
  2. HYDROCORTISONE [Concomitant]
  3. LEVOTHYROXINE SODIUM [Concomitant]

REACTIONS (1)
  - UNRESPONSIVE TO STIMULI [None]
